FAERS Safety Report 11176295 (Version 23)
Quarter: 2018Q4

REPORT INFORMATION
  Report Type: Report from Study
  Country: CA (occurrence: CA)
  Receive Date: 20150609
  Receipt Date: 20181121
  Transmission Date: 20190204
  Serious: Yes (Other)
  Sender: FDA-Public Use
  Company Number: PHHY2015CA005566

PATIENT
  Age: 57 Year
  Sex: Male

DRUGS (5)
  1. SANDOSTATIN LAR DEPOT [Suspect]
     Active Substance: OCTREOTIDE ACETATE
     Dosage: 60 MG, QMO (EVERY 4 WEEKS)
     Route: 030
     Dates: start: 20180628
  2. SANDOSTATIN LAR DEPOT [Suspect]
     Active Substance: OCTREOTIDE ACETATE
     Dosage: 50 MG, QMO
     Route: 030
     Dates: start: 20180403
  3. SANDOSTATIN LAR DEPOT [Suspect]
     Active Substance: OCTREOTIDE ACETATE
     Indication: CARCINOID TUMOUR
     Dosage: 30 MG, UNK
     Route: 030
     Dates: start: 20141218
  4. SANDOSTATIN LAR DEPOT [Suspect]
     Active Substance: OCTREOTIDE ACETATE
     Dosage: 40 MG, QMO
     Route: 030
     Dates: start: 20150114
  5. SANDOSTATIN [Suspect]
     Active Substance: OCTREOTIDE ACETATE
     Indication: CARCINOID TUMOUR
     Dosage: UNK UG, ONCE-TEST DOSE (SINGLE TEST DOSE)
     Route: 058
     Dates: start: 20141211, end: 20141211

REACTIONS (32)
  - Malignant neoplasm progression [Unknown]
  - Pallor [Unknown]
  - Diarrhoea [Unknown]
  - Needle issue [Unknown]
  - Influenza [Unknown]
  - Heart valve incompetence [Unknown]
  - Hypersomnia [Unknown]
  - Eating disorder [Unknown]
  - Blood pressure diastolic increased [Unknown]
  - Abdominal pain [Recovering/Resolving]
  - Inappropriate schedule of product administration [Unknown]
  - Erythema [Unknown]
  - Blood pressure increased [Unknown]
  - Oropharyngeal pain [Unknown]
  - Haemoptysis [Unknown]
  - Abdominal distension [Not Recovered/Not Resolved]
  - Weight increased [Unknown]
  - Acne [Unknown]
  - Blood potassium decreased [Unknown]
  - Body temperature decreased [Unknown]
  - Asthenia [Unknown]
  - Abdominal pain upper [Unknown]
  - Pigmentation disorder [Unknown]
  - Dyspnoea [Recovered/Resolved]
  - Cardiac valve disease [Unknown]
  - Pain [Unknown]
  - Flushing [Unknown]
  - Weight decreased [Unknown]
  - Fatigue [Unknown]
  - Carcinoid tumour of the gastrointestinal tract [Unknown]
  - Dysgeusia [Unknown]
  - Dyspnoea [Unknown]

NARRATIVE: CASE EVENT DATE: 201502
